FAERS Safety Report 24918210 (Version 3)
Quarter: 2025Q2

REPORT INFORMATION
  Report Type: Spontaneous
  Country: US (occurrence: US)
  Receive Date: 20250203
  Receipt Date: 20250409
  Transmission Date: 20250716
  Serious: No
  Sender: NOVARTIS
  Company Number: US-002147023-NVSC2025US018674

PATIENT
  Sex: Female

DRUGS (2)
  1. PROMACTA [Suspect]
     Active Substance: ELTROMBOPAG OLAMINE
     Indication: Thrombocytopenia
     Dosage: 75 MG, QD (1 TIME A DAY)
     Route: 048
     Dates: start: 202410
  2. CYCLOSPORINE [Concomitant]
     Active Substance: CYCLOSPORINE
     Indication: Product used for unknown indication
     Route: 065

REACTIONS (7)
  - Hirsutism [Unknown]
  - Muscle spasms [Unknown]
  - Illness [Unknown]
  - Dehydration [Unknown]
  - Nasopharyngitis [Unknown]
  - Chromaturia [Unknown]
  - Eye colour change [Unknown]
